FAERS Safety Report 9838469 (Version 2)
Quarter: 2014Q1

REPORT INFORMATION
  Report Type: Spontaneous
  Country: US (occurrence: US)
  Receive Date: 20140123
  Receipt Date: 20140123
  Transmission Date: 20141002
  Serious: Yes (Death)
  Sender: FDA-Public Use
  Company Number: US-ASTELLAS-2013US003451

PATIENT
  Sex: Female

DRUGS (2)
  1. TARCEVA [Suspect]
     Indication: GASTRIC CANCER
     Dosage: UNK
     Route: 065
  2. TARCEVA [Suspect]
     Indication: BONE CANCER

REACTIONS (1)
  - Death [Fatal]
